FAERS Safety Report 8048774-5 (Version None)
Quarter: 2012Q1

REPORT INFORMATION
  Report Type: 
  Country: None (occurrence: None)
  Receive Date: 20120117
  Receipt Date: 20120109
  Transmission Date: 20120608
  Serious: Yes (Hospitalization, Other)
  Sender: FDA-Public Use
  Company Number: US-US-EMD SERONO, INC.-7004951

PATIENT
  Sex: Female
  Weight: 62 kg

DRUGS (8)
  1. NEURONTIN [Concomitant]
     Dates: start: 20100329
  2. RAMIPRIL [Concomitant]
  3. GLIPIZIDE [Concomitant]
  4. NAPROSYN [Concomitant]
  5. REBIF [Suspect]
     Route: 058
     Dates: start: 20100501
  6. NOVOLOG [Concomitant]
  7. REBIF [Suspect]
     Indication: MULTIPLE SCLEROSIS
     Route: 058
     Dates: start: 20100208, end: 20100501
  8. METOPROLOL SUCCINATE [Concomitant]

REACTIONS (2)
  - VASCULAR GRAFT [None]
  - INFLUENZA LIKE ILLNESS [None]
